FAERS Safety Report 5005177-5 (Version None)
Quarter: 2006Q2

REPORT INFORMATION
  Report Type: 
  Country: None (occurrence: None)
  Receive Date: 20060518
  Receipt Date: 20040901
  Transmission Date: 20061013
  Serious: Yes (Other)
  Sender: FDA-Public Use
  Company Number: DE-BRISTOL-MYERS SQUIBB COMPANY-13349386

PATIENT
  Sex: Male
  Weight: 63 kg

DRUGS (13)
  1. STAVUDINE [Suspect]
     Indication: HIV INFECTION
     Dosage: THERAPY: AUG-1997-1998; INTERRUPTED 1998-2000
     Dates: start: 19970801
  2. VIDEX [Suspect]
     Indication: HIV INFECTION
     Dates: start: 20000911
  3. LAMIVUDINE/ZIDOVUDINE [Concomitant]
     Indication: HIV INFECTION
     Dates: start: 19970201
  4. NELFINAVIR [Concomitant]
     Indication: HIV INFECTION
     Dates: start: 19970201
  5. LAMIVUDINE [Concomitant]
     Indication: HIV INFECTION
     Dates: start: 19970801, end: 19980101
  6. ABACAVIR [Concomitant]
     Indication: HIV INFECTION
     Dates: start: 20000911
  7. LOPINAVIR [Concomitant]
     Indication: HIV INFECTION
     Dates: start: 20000911
  8. RITONAVIR [Concomitant]
     Indication: HIV INFECTION
     Dates: start: 20000911
  9. TENOFOVIR [Concomitant]
     Indication: HIV INFECTION
     Dates: start: 20020101
  10. NEVIRAPINE [Concomitant]
     Indication: HIV INFECTION
     Dates: start: 20020101
  11. SAQUINAVIR [Concomitant]
     Indication: HIV INFECTION
     Dates: start: 20021201
  12. PENICILLIN G [Concomitant]
     Indication: SYPHILIS
     Dates: start: 20030101
  13. TARDOCILLIN [Concomitant]
     Indication: SYPHILIS
     Dates: start: 20030101

REACTIONS (20)
  - ANAEMIA [None]
  - ANXIETY [None]
  - APPENDICECTOMY [None]
  - DEAFNESS [None]
  - DIARRHOEA [None]
  - DYSGEUSIA [None]
  - ERYTHEMA INFECTIOSUM [None]
  - GAMMA-GLUTAMYLTRANSFERASE INCREASED [None]
  - HYPERAESTHESIA [None]
  - HYPOAESTHESIA [None]
  - LIPIDS INCREASED [None]
  - MENTAL DISORDER [None]
  - MYALGIA [None]
  - PYREXIA [None]
  - RASH [None]
  - RESTLESSNESS [None]
  - SUDDEN HEARING LOSS [None]
  - SYPHILIS [None]
  - TREMOR [None]
  - WEIGHT DECREASED [None]
